FAERS Safety Report 5281885-6 (Version None)
Quarter: 2007Q1

REPORT INFORMATION
  Report Type: 
  Country: None (occurrence: None)
  Receive Date: 20070326
  Receipt Date: 20070312
  Transmission Date: 20070707
  Serious: Yes (Hospitalization)
  Sender: FDA-Public Use
  Company Number: US019584

PATIENT
  Age: 32 Year
  Sex: Female

DRUGS (7)
  1. TRISENOX [Suspect]
     Indication: ACUTE PROMYELOCYTIC LEUKAEMIA
     Dosage: 8.85 MG QD INTRAVENOUS DRIP
     Route: 041
     Dates: start: 20061018, end: 20061216
  2. CEFDINIR [Concomitant]
  3. ETIZOLAM [Concomitant]
  4. FEXOFENADINE HYDROCHLORIDE [Concomitant]
  5. RANITIDINE HYDROCHLORIDE [Concomitant]
  6. ZOLPIDEM TARTRATE [Concomitant]
  7. GEFARNATE [Concomitant]

REACTIONS (4)
  - ELECTROCARDIOGRAM QT CORRECTED INTERVAL PROLONGED [None]
  - ELECTROCARDIOGRAM QT PROLONGED [None]
  - HYPOKALAEMIA [None]
  - PANCYTOPENIA [None]
